FAERS Safety Report 5102678-6 (Version None)
Quarter: 2006Q3

REPORT INFORMATION
  Report Type: 
  Country: None (occurrence: None)
  Receive Date: 20060912
  Receipt Date: 20060801
  Transmission Date: 20061208
  Serious: No
  Sender: FDA-Public Use
  Company Number: HR-PURDUE-DEU_2006_0002389

PATIENT
  Age: 45 Year
  Sex: Female

DRUGS (2)
  1. OXYGESIC 20 MG [Suspect]
     Indication: PROCEDURAL PAIN
     Dosage: 20 MG, BID
     Route: 048
     Dates: start: 20060718, end: 20060724
  2. TRAMADOL HCL [Concomitant]

REACTIONS (6)
  - ABDOMINAL PAIN [None]
  - CONSTIPATION [None]
  - DIZZINESS [None]
  - HEADACHE [None]
  - NAUSEA [None]
  - TACHYCARDIA [None]
